FAERS Safety Report 17881496 (Version 1)
Quarter: 2020Q2

REPORT INFORMATION
  Report Type: Spontaneous
  Country: US (occurrence: US)
  Receive Date: 20200610
  Receipt Date: 20200610
  Transmission Date: 20200714
  Serious: No
  Sender: FDA-Public Use
  Company Number: US-COLLEGIUM PHARMACEUTICAL, INC.-2019CGM00213

PATIENT
  Sex: Male
  Weight: 131.97 kg

DRUGS (3)
  1. XTAMPZA ER [Suspect]
     Active Substance: OXYCODONE
     Dosage: 13.5 MG, 1X/DAY
  2. LYRICA [Concomitant]
     Active Substance: PREGABALIN
  3. XTAMPZA ER [Suspect]
     Active Substance: OXYCODONE
     Indication: POST LAMINECTOMY SYNDROME
     Dosage: 13.5 MG, 2X/DAY

REACTIONS (5)
  - Product substitution issue [Recovered/Resolved]
  - Anxiety [Recovering/Resolving]
  - Palpitations [Recovering/Resolving]
  - Anger [Recovering/Resolving]
  - Depression [Recovering/Resolving]
